FAERS Safety Report 20102512 (Version 1)
Quarter: 2021Q4

REPORT INFORMATION
  Report Type: Spontaneous
  Country: US (occurrence: US)
  Receive Date: 20211123
  Receipt Date: 20211123
  Transmission Date: 20220303
  Serious: Yes (Other)
  Sender: FDA-Public Use
  Company Number: US-GLAXOSMITHKLINE-  US2021GSK240708

PATIENT
  Sex: Male

DRUGS (6)
  1. ZANTAC [Suspect]
     Active Substance: RANITIDINE HYDROCHLORIDE
     Indication: Dyspepsia
     Dosage: 150 MG, ONCE A DAY,7 DAYS A WEEK
     Route: 065
     Dates: start: 198301, end: 201501
  2. ZANTAC [Suspect]
     Active Substance: RANITIDINE HYDROCHLORIDE
     Indication: Dyspepsia
     Dosage: 150 MG, ONCE A DAY , 7 DAYS A WEEK
     Route: 065
     Dates: start: 198301, end: 201501
  3. RANITIDINE HYDROCHLORIDE [Suspect]
     Active Substance: RANITIDINE HYDROCHLORIDE
     Indication: Dyspepsia
     Dosage: 150 MG, ONCE A DAY , 7 DAYS A WEEK
     Route: 065
     Dates: start: 198301, end: 201501
  4. RANITIDINE HYDROCHLORIDE [Suspect]
     Active Substance: RANITIDINE HYDROCHLORIDE
     Indication: Dyspepsia
     Dosage: 150 MG, ONCE A DAY , 7 DAYS A WEEK
     Route: 065
     Dates: start: 198301, end: 201501
  5. RANITIDINE [Suspect]
     Active Substance: RANITIDINE
     Indication: Dyspepsia
     Dosage: 150 MG, ONCE A DAY , 7 DAYS A WEEK
     Route: 065
     Dates: start: 198301, end: 201501
  6. RANITIDINE [Suspect]
     Active Substance: RANITIDINE
     Indication: Dyspepsia
     Dosage: 150 MG, ONCE A DAY , 7 DAYS A WEEK
     Route: 065
     Dates: start: 198301, end: 201501

REACTIONS (1)
  - Bladder cancer [Unknown]
